FAERS Safety Report 5298351-4 (Version None)
Quarter: 2007Q2

REPORT INFORMATION
  Report Type: 
  Country: None (occurrence: None)
  Receive Date: 20070416
  Receipt Date: 20070404
  Transmission Date: 20071010
  Serious: Yes (Other)
  Sender: FDA-Public Use
  Company Number: US-PFIZER INC-2007018319

PATIENT
  Sex: Male
  Weight: 106.6 kg

DRUGS (5)
  1. XALATAN [Suspect]
     Indication: GLAUCOMA
     Route: 047
     Dates: start: 20070216, end: 20070306
  2. ZOCOR [Concomitant]
  3. TOPROL-XL [Concomitant]
  4. ASPIRIN [Concomitant]
  5. SYNTHROID [Concomitant]

REACTIONS (7)
  - ADENOVIRAL CONJUNCTIVITIS [None]
  - CATARACT [None]
  - CONJUNCTIVITIS [None]
  - CONTUSION [None]
  - EYE DISCHARGE [None]
  - SWELLING FACE [None]
  - VISION BLURRED [None]
